FAERS Safety Report 5028879-3 (Version None)
Quarter: 2006Q2

REPORT INFORMATION
  Report Type: 
  Country: None (occurrence: None)
  Receive Date: 20060501
  Receipt Date: 20060209
  Transmission Date: 20061013
  Serious: No
  Sender: FDA-Public Use
  Company Number: 200611546US

PATIENT
  Age: 65 Year
  Sex: Female
  Weight: 102.73 kg

DRUGS (4)
  1. KETEK [Suspect]
     Dosage: 800 MG QD PO
     Route: 048
     Dates: start: 20060117, end: 20060101
  2. BYETTA SOLUTION FOR INJECTION [Suspect]
     Indication: DIABETES MELLITUS NON-INSULIN-DEPENDENT
     Dosage: 5 UG SC
     Route: 058
     Dates: start: 20051116, end: 20051215
  3. BYETTA [Suspect]
     Indication: DIABETES MELLITUS NON-INSULIN-DEPENDENT
     Dosage: 10 UG BID SC
     Route: 058
     Dates: start: 20060117
  4. PREDNISONE [Concomitant]

REACTIONS (2)
  - BRONCHITIS [None]
  - INJECTION SITE ERYTHEMA [None]
